FAERS Safety Report 23190430 (Version 2)
Quarter: 2023Q4

REPORT INFORMATION
  Report Type: Report from Study
  Country: BR (occurrence: BR)
  Receive Date: 20231116
  Receipt Date: 20231129
  Transmission Date: 20240109
  Serious: Yes (Hospitalization)
  Sender: FDA-Public Use
  Company Number: BR-BoehringerIngelheim-2023-BI-272699

PATIENT
  Age: 53 Year
  Sex: Female
  Weight: 81 kg

DRUGS (4)
  1. JARDIANCE [Suspect]
     Active Substance: EMPAGLIFLOZIN
     Indication: Diabetes mellitus
     Dosage: HALF A TABLET OF JARDIANCE 25 MG AT NIGHT
     Route: 048
     Dates: start: 201611
  2. JARDIANCE [Suspect]
     Active Substance: EMPAGLIFLOZIN
     Dosage: HALF A TABLET OF JARDIANCE 25 MG AT NIGHT.
     Route: 048
  3. ALOGLIPTIN BENZOATE\METFORMIN HYDROCHLORIDE [Concomitant]
     Active Substance: ALOGLIPTIN BENZOATE\METFORMIN HYDROCHLORIDE
     Indication: Product used for unknown indication
     Dosage: NESINA MET 12.5/1000MG - ONE TABLET AFTER LUNCH, CONTINUOUS USE.
  4. METFORMIN HYDROCHLORIDE [Concomitant]
     Active Substance: METFORMIN HYDROCHLORIDE
     Indication: Product used for unknown indication
     Dosage: GLIFAGE XR 500MG - THREE TABLETS A DAY MORNING/ AFTERNOON AND NIGHT. CONTINUOUS USE.

REACTIONS (4)
  - Cerebrovascular accident [Recovered/Resolved]
  - Wrong technique in product usage process [Recovered/Resolved]
  - Wrong technique in product usage process [Not Recovered/Not Resolved]
  - Diabetes mellitus inadequate control [Unknown]

NARRATIVE: CASE EVENT DATE: 20161101
